FAERS Safety Report 25462333 (Version 1)
Quarter: 2025Q2

REPORT INFORMATION
  Report Type: Spontaneous
  Country: US (occurrence: None)
  Receive Date: 20250619
  Receipt Date: 20250619
  Transmission Date: 20250717
  Serious: Yes (Other)
  Sender: FDA-CTU
  Company Number: None

PATIENT
  Age: 66 Year
  Sex: Female
  Weight: 67.5 kg

DRUGS (2)
  1. NITROFURANTOIN [Suspect]
     Active Substance: NITROFURANTOIN
     Indication: Prophylaxis urinary tract infection
     Dosage: OTHER QUANTITY : 1 CAPSULE(S);?FREQUENCY : DAILY;?
     Dates: start: 20230601, end: 20250521
  2. RYBELSUS [Concomitant]
     Active Substance: SEMAGLUTIDE

REACTIONS (5)
  - Chills [None]
  - Fatigue [None]
  - Hepatotoxicity [None]
  - Drug-induced liver injury [None]
  - Lupus-like syndrome [None]

NARRATIVE: CASE EVENT DATE: 20250520
